FAERS Safety Report 6390579-5 (Version None)
Quarter: 2009Q4

REPORT INFORMATION
  Report Type: 
  Country: None (occurrence: None)
  Receive Date: 20091005
  Receipt Date: 20091005
  Transmission Date: 20100525
  Serious: Yes (Hospitalization)
  Sender: FDA-Public Use
  Company Number: None

PATIENT
  Age: 50 Year
  Sex: Female

DRUGS (2)
  1. OTRIVIN [Suspect]
     Indication: NASAL CONGESTION
     Dosage: EVERY HALF HOUR, NASAL
     Route: 045
  2. EPHEDRINE SUL CAP [Suspect]
     Indication: NASAL CONGESTION
     Dosage: EVERY HALF HOUR, NASAL
     Route: 045

REACTIONS (9)
  - ANGINA PECTORIS [None]
  - DRUG ABUSE [None]
  - DYSPNOEA [None]
  - ELECTROCARDIOGRAM ST SEGMENT DEPRESSION [None]
  - HYPERTENSION [None]
  - INTENTIONAL DRUG MISUSE [None]
  - NASAL CONGESTION [None]
  - PALPITATIONS [None]
  - SINUS TACHYCARDIA [None]
